FAERS Safety Report 6773959-5 (Version None)
Quarter: 2010Q2

REPORT INFORMATION
  Report Type: 
  Country: None (occurrence: None)
  Receive Date: 20100617
  Receipt Date: 20100609
  Transmission Date: 20101027
  Serious: Yes (Hospitalization)
  Sender: FDA-Public Use
  Company Number: FR-SOLVAY-00210003728

PATIENT
  Age: 26835 Day
  Sex: Male

DRUGS (28)
  1. LOXEN [Suspect]
     Indication: HYPERTENSION
     Dosage: DAILY DOSE: 20 MILLIGRAM(S)
     Route: 048
     Dates: start: 20100411, end: 20100413
  2. LOXEN [Suspect]
     Dosage: DAILY DOSE:  UNKNOWN
     Route: 065
     Dates: start: 20100601
  3. RAMIPRIL [Concomitant]
     Indication: DRUG USE FOR UNKNOWN INDICATION
     Dosage: DAILY DOSE:  UNKNOWN
     Route: 065
  4. NOVOMIX [Concomitant]
     Indication: DRUG USE FOR UNKNOWN INDICATION
     Dosage: DAILY DOSE:  UNKNOWN
     Route: 065
  5. DAFALGAN CODEINE [Suspect]
     Indication: BACK PAIN
     Dosage: DAILY DOSE: 3 GRAM(S)
     Route: 048
     Dates: start: 20100409, end: 20100413
  6. DAFALGAN CODEINE [Suspect]
     Dosage: DAILY DOSE:  UNKNOWN
     Route: 065
     Dates: start: 20100601
  7. THIOCOLCHICOSIDE [Suspect]
     Indication: BACK PAIN
     Dosage: DAILY DOSE: 12 MILLIGRAM(S)
     Route: 048
     Dates: start: 20100407, end: 20100414
  8. THIOCOLCHICOSIDE [Suspect]
     Dosage: DAILY DOSE:  UNKNOWN
     Route: 065
     Dates: start: 20100601
  9. MOLSIDOMINE [Concomitant]
     Indication: DRUG USE FOR UNKNOWN INDICATION
     Dosage: DAILY DOSE:  UNKNOWN
     Route: 065
  10. ISOPTIN SR [Concomitant]
     Indication: DRUG USE FOR UNKNOWN INDICATION
     Dosage: DAILY DOSE:  UNKNOWN
     Route: 065
  11. MYSOLINE [Suspect]
     Indication: ESSENTIAL TREMOR
     Dosage: DAILY DOSE: 187.5 MILLIGRAM(S)
     Route: 048
     Dates: start: 20090101, end: 20100413
  12. TOPALGIC LP 100 MG [Suspect]
     Indication: BACK PAIN
     Dosage: DAILY DOSE: 800 MILLIGRAM(S)
     Route: 048
     Dates: start: 20100407, end: 20100414
  13. TOPALGIC LP 100 MG [Suspect]
     Dosage: DAILY DOSE:  UNKNOWN
     Route: 065
     Dates: start: 20100601
  14. NEXIUM [Concomitant]
     Indication: DRUG USE FOR UNKNOWN INDICATION
     Dosage: DAILY DOSE:  UNKNOWN
     Route: 065
  15. GLUCOPHAGE [Suspect]
     Indication: TYPE 2 DIABETES MELLITUS
     Dosage: DAILY DOSE: 1 GRAM(S)
     Route: 048
     Dates: start: 20090101, end: 20100407
  16. GLUCOPHAGE [Suspect]
     Dosage: DAILY DOSE:  UNKNOWN
     Route: 065
     Dates: start: 20100601
  17. IMOVANE [Concomitant]
     Indication: DRUG USE FOR UNKNOWN INDICATION
     Dosage: DAILY DOSE:  UNKNOWN
     Route: 065
  18. PREVISCAN [Suspect]
     Indication: ATRIAL FIBRILLATION
     Dosage: DAILY DOSE: 20 MILLIGRAM(S)
     Route: 048
     Dates: start: 20090101, end: 20100113
  19. PREVISCAN [Suspect]
     Dosage: DAILY DOSE:  UNKNOWN
     Route: 065
     Dates: start: 20100601
  20. FORLAX [Concomitant]
     Indication: DRUG USE FOR UNKNOWN INDICATION
     Dosage: DAILY DOSE:  UNKNOWN
     Route: 065
     Dates: start: 20100411, end: 20100417
  21. CITALOPRAM HYDROBROMIDE [Suspect]
     Indication: DEPRESSION
     Dosage: DAILY DOSE: 20 MILLIGRAM(S)
     Route: 048
     Dates: start: 20100410, end: 20100413
  22. KAYEXALATE [Concomitant]
     Indication: DRUG USE FOR UNKNOWN INDICATION
     Dosage: DAILY DOSE:  UNKNOWN
     Route: 065
     Dates: start: 20100408, end: 20100409
  23. LIPANTHYL [Suspect]
     Indication: DYSLIPIDAEMIA
     Dosage: DAILY DOSE: 160 MILLIGRAM(S)
     Route: 048
     Dates: start: 20090101, end: 20100413
  24. LIPANTHYL [Suspect]
     Dosage: DAILY DOSE:  UNKNOWN
     Route: 065
     Dates: start: 20100601
  25. DOLIPRANE [Concomitant]
     Indication: DRUG USE FOR UNKNOWN INDICATION
     Dosage: DAILY DOSE:  UNKNOWN
     Route: 065
     Dates: start: 20100407, end: 20100409
  26. PERINDOPRIL [Suspect]
     Indication: HYPERTENSION
     Dosage: DAILY DOSE: 2 MILLIGRAM(S)
     Route: 048
     Dates: start: 20090101, end: 20100408
  27. PERINDOPRIL [Suspect]
     Dosage: DAILY DOSE:  UNKNOWN
     Route: 065
     Dates: start: 20100601
  28. CREON [Concomitant]
     Indication: DRUG USE FOR UNKNOWN INDICATION
     Dosage: DAILY DOSE:  UNKNOWN
     Route: 048
     Dates: end: 20100414

REACTIONS (3)
  - BACK PAIN [None]
  - CYTOLYTIC HEPATITIS [None]
  - TRANSAMINASES INCREASED [None]
